FAERS Safety Report 9823252 (Version 1)
Quarter: 2014Q1

REPORT INFORMATION
  Report Type: Spontaneous
  Country: US (occurrence: US)
  Receive Date: 20140116
  Receipt Date: 20140116
  Transmission Date: 20141002
  Serious: No
  Sender: FDA-Public Use
  Company Number: US-PURDUE-USA-2013-0109023

PATIENT
  Age: 64 Year
  Sex: Female

DRUGS (1)
  1. DILAUDID INJECTION [Suspect]
     Indication: COMPLEX REGIONAL PAIN SYNDROME
     Route: 042

REACTIONS (3)
  - Vomiting [Unknown]
  - Diarrhoea [Unknown]
  - Unevaluable event [Unknown]
